FAERS Safety Report 16386902 (Version 2)
Quarter: 2019Q2

REPORT INFORMATION
  Report Type: Spontaneous
  Country: PT (occurrence: PT)
  Receive Date: 20190604
  Receipt Date: 20190626
  Transmission Date: 20190711
  Serious: Yes (Death, Disabling, Other)
  Sender: FDA-Public Use
  Company Number: PT-ROCHE-2331090

PATIENT
  Sex: Male

DRUGS (1)
  1. ALECENSA [Suspect]
     Active Substance: ALECTINIB HYDROCHLORIDE
     Indication: PRODUCT USED FOR UNKNOWN INDICATION
     Route: 065

REACTIONS (4)
  - Metastases to central nervous system [Unknown]
  - Death [Fatal]
  - Hemiparesis [Unknown]
  - Cerebrovascular accident [Unknown]
